FAERS Safety Report 25190337 (Version 1)
Quarter: 2025Q2

REPORT INFORMATION
  Report Type: Spontaneous
  Country: US (occurrence: US)
  Receive Date: 20250411
  Receipt Date: 20250411
  Transmission Date: 20250717
  Serious: No
  Sender: NOVARTIS
  Company Number: US-002147023-NVSC2025US057992

PATIENT
  Age: 74 Year
  Sex: Female

DRUGS (1)
  1. LEQVIO [Suspect]
     Active Substance: INCLISIRAN SODIUM
     Indication: Product used for unknown indication
     Route: 058
     Dates: start: 20250401

REACTIONS (3)
  - Influenza like illness [Unknown]
  - COVID-19 [Unknown]
  - Influenza [Unknown]

NARRATIVE: CASE EVENT DATE: 20250403
